FAERS Safety Report 15285159 (Version 1)
Quarter: 2018Q3

REPORT INFORMATION
  Report Type: Spontaneous
  Country: US (occurrence: US)
  Receive Date: 20180801
  Receipt Date: 20180801
  Transmission Date: 20181010
  Serious: No
  Sender: FDA-Public Use
  Company Number: None

PATIENT
  Age: 63 Year
  Sex: Female

DRUGS (1)
  1. AFINITOR [Suspect]
     Active Substance: EVEROLIMUS
     Indication: BREAST CANCER
     Route: 048
     Dates: start: 20180413

REACTIONS (4)
  - Hepatic enzyme increased [None]
  - Dysgeusia [None]
  - Blood glucose increased [None]
  - Decreased appetite [None]

NARRATIVE: CASE EVENT DATE: 20180531
